FAERS Safety Report 5986909-6 (Version None)
Quarter: 2008Q4

REPORT INFORMATION
  Report Type: 
  Country: None (occurrence: None)
  Receive Date: 20081209
  Receipt Date: 20080904
  Transmission Date: 20090506
  Serious: No
  Sender: FDA-Public Use
  Company Number: US-AMGEN-KDL305844

PATIENT
  Sex: Male

DRUGS (2)
  1. ENBREL [Suspect]
     Indication: RHEUMATOID ARTHRITIS
     Route: 058
     Dates: start: 20000307
  2. ARAVA [Concomitant]
     Route: 048

REACTIONS (2)
  - URINARY TRACT INFECTION [None]
  - URINE ODOUR ABNORMAL [None]
